FAERS Safety Report 20451105 (Version 1)
Quarter: 2022Q1

REPORT INFORMATION
  Report Type: Spontaneous
  Country: ES (occurrence: ES)
  Receive Date: 20220209
  Receipt Date: 20220209
  Transmission Date: 20220423
  Serious: Yes (Other)
  Sender: FDA-Public Use
  Company Number: None

PATIENT
  Sex: Male

DRUGS (4)
  1. CARIPRAZINE HYDROCHLORIDE [Suspect]
     Active Substance: CARIPRAZINE HYDROCHLORIDE
     Indication: Schizophrenia
     Dosage: INI-3MG/D, FIN-6MG/D
     Route: 048
     Dates: start: 20220103, end: 20220110
  2. PLENUR COMPRIMIDOS DE LIBERACION MODIFICADA [Concomitant]
     Indication: Schizophrenia
     Dosage: 400 MG, Q12H
     Route: 048
     Dates: start: 20220103, end: 20220112
  3. CLOZAPINE [Concomitant]
     Active Substance: CLOZAPINE
     Dosage: 100 MG, QD
     Route: 048
     Dates: start: 20211110, end: 20220103
  4. SERTRALINE [Concomitant]
     Active Substance: SERTRALINE HYDROCHLORIDE
     Dosage: 200 MG, QD
     Route: 048
     Dates: start: 20211110, end: 20220112

REACTIONS (3)
  - Hepatotoxicity [Recovered/Resolved]
  - Polyuria [Not Recovered/Not Resolved]
  - Tremor [Not Recovered/Not Resolved]

NARRATIVE: CASE EVENT DATE: 20220112
